FAERS Safety Report 10301291 (Version 1)
Quarter: 2014Q3

REPORT INFORMATION
  Report Type: Report from Study
  Country: US (occurrence: US)
  Receive Date: 20140714
  Receipt Date: 20140714
  Transmission Date: 20150326
  Serious: Yes (Hospitalization, Other)
  Sender: FDA-Public Use
  Company Number: US-JNJFOC-20140706217

PATIENT
  Age: 16 Year
  Sex: Male

DRUGS (1)
  1. NUCYNTA ER [Suspect]
     Active Substance: TAPENTADOL HYDROCHLORIDE
     Indication: PRODUCT USED FOR UNKNOWN INDICATION
     Route: 048
     Dates: start: 20140104

REACTIONS (5)
  - Nausea [Unknown]
  - Suicide attempt [Recovered/Resolved]
  - Lethargy [Unknown]
  - Drug diversion [Unknown]
  - Somnolence [Unknown]

NARRATIVE: CASE EVENT DATE: 20140104
